FAERS Safety Report 6474183-6 (Version None)
Quarter: 2009Q4

REPORT INFORMATION
  Report Type: 
  Country: None (occurrence: None)
  Receive Date: 20091204
  Receipt Date: 20090925
  Transmission Date: 20100525
  Serious: Yes (Hospitalization)
  Sender: FDA-Public Use
  Company Number: US-SANOFI-AVENTIS-200918615US

PATIENT
  Age: 62 Year
  Sex: Female

DRUGS (3)
  1. INSULIN GLARGINE [Suspect]
     Dosage: DOSE:17 UNIT(S)
     Route: 058
  2. OPTICLICK [Suspect]
  3. CARDIOVASCULAR SYSTEM DRUGS [Concomitant]
     Dosage: DOSE AS USED: UNK

REACTIONS (1)
  - MYALGIA [None]
